FAERS Safety Report 7791441-3 (Version None)
Quarter: 2011Q4

REPORT INFORMATION
  Report Type: 
  Country: None (occurrence: None)
  Receive Date: 20111003
  Receipt Date: 20110920
  Transmission Date: 20120403
  Serious: Yes (Death, Other)
  Sender: FDA-Public Use
  Company Number: US-CELGENEUS-087-50794-11063432

PATIENT
  Age: 69 Year
  Sex: Male
  Weight: 59 kg

DRUGS (10)
  1. VIDAZA [Suspect]
     Dosage: 75 MILLIGRAM/SQ. METER
     Route: 041
     Dates: start: 20110519, end: 20110525
  2. IMMUNE GLOBULIN INTRAVENOUS (HUMAN) [Concomitant]
     Dosage: 5 GRAM
     Route: 041
     Dates: start: 20110620
  3. ALLOPURINOL [Concomitant]
     Dosage: 300 MILLIGRAM
     Route: 048
     Dates: start: 20110525
  4. OMEPTOROL [Concomitant]
     Dosage: 20 MILLIGRAM
     Route: 048
     Dates: start: 20110620
  5. MAGNESIUM SULFATE [Concomitant]
     Dosage: 900 MILLIGRAM
     Route: 048
     Dates: start: 20110620
  6. URSO 250 [Concomitant]
     Dosage: 300 MILLIGRAM
     Route: 048
     Dates: start: 20110525
  7. MEROPENEM [Concomitant]
     Dosage: 1.5 GRAM
     Route: 041
     Dates: start: 20110620
  8. LEVOFLOXACIN [Concomitant]
     Dosage: 500 MILLIGRAM
     Route: 048
     Dates: start: 20110602
  9. ITRACONAZOLE [Concomitant]
     Dosage: 200 MILLIGRAM
     Route: 048
     Dates: start: 20110617
  10. MYONAL [Concomitant]
     Dosage: 150 MILLIGRAM
     Route: 048
     Dates: start: 20110620

REACTIONS (5)
  - MALAISE [None]
  - INJECTION SITE ERYTHEMA [None]
  - DECREASED APPETITE [None]
  - SEPTIC SHOCK [None]
  - PYREXIA [None]
